FAERS Safety Report 5267070-2 (Version None)
Quarter: 2007Q1

REPORT INFORMATION
  Report Type: 
  Country: None (occurrence: None)
  Receive Date: 20070316
  Receipt Date: 20070307
  Transmission Date: 20070707
  Serious: Yes (Hospitalization)
  Sender: FDA-Public Use
  Company Number: US-BAYER-200711374GDS

PATIENT
  Age: 35 Year
  Sex: Female

DRUGS (1)
  1. NYQUIL [Suspect]
     Indication: UPPER RESPIRATORY TRACT INFECTION
     Route: 065

REACTIONS (3)
  - HALLUCINATION [None]
  - NIGHTMARE [None]
  - PSYCHOTIC DISORDER [None]
